FAERS Safety Report 9233385 (Version 2)
Quarter: 2013Q2

REPORT INFORMATION
  Report Type: Spontaneous
  Country: JP (occurrence: JP)
  Receive Date: 20130416
  Receipt Date: 20130520
  Transmission Date: 20140414
  Serious: Yes (Hospitalization, Other)
  Sender: FDA-Public Use
  Company Number: JP-PFIZER INC-2013115225

PATIENT
  Age: 81 Year
  Sex: Male
  Weight: 56 kg

DRUGS (11)
  1. UNASYN-S [Suspect]
     Indication: PNEUMONIA
     Dosage: 3 G, 3X/DAY
     Route: 041
     Dates: start: 20130330, end: 20130405
  2. ZOSYN [Concomitant]
     Indication: PNEUMONIA
     Dosage: 4.5 G, 3X/DAY
     Route: 041
     Dates: start: 20130327, end: 20130329
  3. OMEPRAL [Concomitant]
     Indication: PROPHYLAXIS
     Dosage: 20 MG, 2X/DAY
     Route: 042
     Dates: start: 20130327, end: 20130401
  4. FRAGMIN [Concomitant]
     Indication: THROMBOSIS PROPHYLAXIS
     Dosage: 2500 IU, 1X/DAY
     Route: 041
     Dates: start: 20130327, end: 20130402
  5. FRAGMIN [Concomitant]
     Indication: DISSEMINATED INTRAVASCULAR COAGULATION
  6. NORADRENALIN ^LECIVA^ [Concomitant]
     Indication: SEPTIC SHOCK
     Dosage: 10 MG, 1X/DAY
     Route: 041
     Dates: start: 20130327, end: 20130329
  7. VENILON [Concomitant]
     Indication: SEPSIS
     Dosage: 5 G, 1X/DAY
     Route: 041
     Dates: start: 20130327, end: 20130329
  8. RECOMODULIN [Concomitant]
     Indication: DISSEMINATED INTRAVASCULAR COAGULATION
     Dosage: 6400 IU, 1X/DAY
     Route: 041
     Dates: start: 20130329, end: 20130401
  9. MILLISROL [Concomitant]
     Indication: CARDIAC FAILURE
     Dosage: 40 MG, 1X/DAY
     Route: 041
     Dates: start: 20130331, end: 20130401
  10. FUROSEMIDE [Concomitant]
     Indication: CARDIAC FAILURE
     Dosage: 20 MG, 1X/DAY
     Route: 042
     Dates: start: 20130331, end: 20130331
  11. CEFTRIAXONE SODIUM [Concomitant]
     Indication: PNEUMONIA
     Dosage: 2 G, 1X/DAY
     Route: 041
     Dates: start: 20130405, end: 20130409

REACTIONS (1)
  - Interstitial lung disease [Recovering/Resolving]
